FAERS Safety Report 10367596 (Version 1)
Quarter: 2014Q3

REPORT INFORMATION
  Report Type: Spontaneous
  Country: US (occurrence: None)
  Receive Date: 20140806
  Receipt Date: 20140806
  Transmission Date: 20150326
  Serious: No
  Sender: FDA-Public Use
  Company Number: None

PATIENT
  Age: 35 Year
  Sex: Male
  Weight: 102.06 kg

DRUGS (1)
  1. LEXAPRO [Suspect]
     Active Substance: ESCITALOPRAM OXALATE
     Dosage: 1 PILL ONCE DAILY TAKEN BY MOUTH
     Route: 048

REACTIONS (6)
  - Depression [None]
  - Condition aggravated [None]
  - Drug effect decreased [None]
  - Product substitution issue [None]
  - Economic problem [None]
  - Anxiety [None]

NARRATIVE: CASE EVENT DATE: 20140707
